FAERS Safety Report 9958698 (Version 1)
Quarter: 2014Q1

REPORT INFORMATION
  Report Type: Report from Study
  Country: US (occurrence: US)
  Receive Date: 20140305
  Receipt Date: 20140305
  Transmission Date: 20141002
  Serious: Yes (Hospitalization)
  Sender: FDA-Public Use
  Company Number: US-ROCHE-1357684

PATIENT
  Sex: Male

DRUGS (2)
  1. VALCYTE [Suspect]
     Indication: ANTIVIRAL PROPHYLAXIS
     Route: 048
  2. VALCYTE [Suspect]
     Indication: RENAL TRANSPLANT

REACTIONS (1)
  - Nephrectomy [Unknown]
